FAERS Safety Report 15595913 (Version 4)
Quarter: 2019Q2

REPORT INFORMATION
  Report Type: Report from Study
  Country: US (occurrence: US)
  Receive Date: 20181107
  Receipt Date: 20190402
  Transmission Date: 20190711
  Serious: Yes (Other)
  Sender: FDA-Public Use
  Company Number: PHEH2018US046623

PATIENT
  Sex: Male

DRUGS (1)
  1. ENTRESTO [Suspect]
     Active Substance: SACUBITRIL\VALSARTAN
     Indication: PRODUCT USED FOR UNKNOWN INDICATION
     Dosage: 0.5 DF (24/26 MG), QD
     Route: 048

REACTIONS (11)
  - Blood pressure decreased [Unknown]
  - Underdose [Unknown]
  - Limb discomfort [Unknown]
  - Renal impairment [Unknown]
  - Fall [Unknown]
  - Nasopharyngitis [Unknown]
  - Arthropathy [Unknown]
  - Device malfunction [Unknown]
  - Inappropriate schedule of product administration [Unknown]
  - Wrong technique in product usage process [Unknown]
  - Asthenia [Unknown]
